FAERS Safety Report 5500801-2 (Version None)
Quarter: 2007Q4

REPORT INFORMATION
  Report Type: 
  Country: None (occurrence: None)
  Receive Date: 20071029
  Receipt Date: 20071023
  Transmission Date: 20080405
  Serious: Yes (Other)
  Sender: FDA-Public Use
  Company Number: A0690167A

PATIENT
  Age: 38 Year
  Sex: Female

DRUGS (7)
  1. LAMOTRIGINE [Suspect]
     Indication: BIPOLAR DISORDER
     Route: 048
  2. SEROQUEL [Concomitant]
     Dosage: 500MG PER DAY
  3. FOLIC ACID [Concomitant]
  4. PRENATAL VITAMINS [Concomitant]
  5. GLUCOPHAGE [Concomitant]
     Dosage: 500MG PER DAY
  6. CLOMID [Concomitant]
     Dosage: 50MG PER DAY
  7. KLONOPIN [Concomitant]

REACTIONS (3)
  - DRUG EXPOSURE DURING PREGNANCY [None]
  - GESTATIONAL DIABETES [None]
  - PREGNANCY [None]
